FAERS Safety Report 6330241-8 (Version None)
Quarter: 2009Q3

REPORT INFORMATION
  Report Type: 
  Country: None (occurrence: None)
  Receive Date: 20090827
  Receipt Date: 20090528
  Transmission Date: 20100115
  Serious: No
  Sender: FDA-Public Use
  Company Number: US-KINGPHARMUSA00001-K200900647

PATIENT
  Age: 58 Year
  Sex: Male
  Weight: 84.807 kg

DRUGS (15)
  1. FLECTOR [Suspect]
     Indication: BACK PAIN
     Dosage: 1 PATCH DAILY, AS NEEDED
     Route: 061
     Dates: start: 20090508
  2. LOMOTIL [Concomitant]
     Indication: DIARRHOEA
     Dosage: UNK
     Route: 048
  3. ACTOS [Concomitant]
     Indication: DIABETES MELLITUS
     Dosage: UNK
  4. CRESTOR [Concomitant]
     Indication: BLOOD CHOLESTEROL INCREASED
     Dosage: UNK
  5. PRINZIDE [Concomitant]
     Indication: HYPERTENSION
     Dosage: UNK
  6. NORCO [Concomitant]
     Indication: BACK PAIN
     Dosage: UNK
  7. AMBIEN [Concomitant]
     Indication: INSOMNIA
     Dosage: UNK
  8. PAMELOR [Concomitant]
     Indication: TEMPOROMANDIBULAR JOINT SYNDROME
     Dosage: 50 MG, QHS
  9. NIACIN [Concomitant]
     Indication: DIABETES MELLITUS
     Dosage: UNK
  10. FISH OIL [Concomitant]
     Dosage: UNK
  11. VITAMINS [Concomitant]
     Dosage: UNK
  12. PERIDEX [Concomitant]
     Dosage: UNK
     Route: 048
  13. ALAVERT [Concomitant]
     Indication: SEASONAL ALLERGY
     Dosage: UNK
  14. MYCELEX [Concomitant]
     Dosage: UNK
  15. ANTIVIRALS FOR SYSTEMIC USE [Concomitant]
     Dosage: UNK

REACTIONS (1)
  - HAEMATOCHEZIA [None]
